FAERS Safety Report 8864382 (Version 1)
Quarter: 2012Q4

REPORT INFORMATION
  Report Type: 
  Country: US (occurrence: US)
  Receive Date: 20121024
  Receipt Date: 20121024
  Transmission Date: 20130627
  Serious: No
  Sender: FDA-Public Use
  Company Number: US-AMGEN-USASP2011067190

PATIENT
  Age: 43 Year
  Sex: Male

DRUGS (9)
  1. ENBREL [Suspect]
     Indication: RHEUMATOID ARTHRITIS
     Dosage: 50 mg, qwk
     Route: 058
  2. HUMIRA [Concomitant]
  3. LISINOPRIL [Concomitant]
     Dosage: 2.5 mg, UNK
     Route: 048
  4. INDOMETHACIN                       /00003801/ [Concomitant]
     Dosage: 25 mg, UNK
     Route: 048
  5. HYDROXYCHLOROQUINE [Concomitant]
     Dosage: 200 mg, UNK
     Route: 048
  6. PRILOSEC                           /00661201/ [Concomitant]
     Dosage: 20 mg, UNK
     Route: 048
  7. VITAMIN C                          /00008001/ [Concomitant]
     Dosage: 500 mg, UNK
     Route: 048
  8. VITAMIN D /00107901/ [Concomitant]
     Route: 048
  9. GINKOBA [Concomitant]
     Dosage: 40 mg, UNK
     Route: 048

REACTIONS (1)
  - Drug ineffective [Not Recovered/Not Resolved]
